FAERS Safety Report 4570563-4 (Version None)
Quarter: 2005Q1

REPORT INFORMATION
  Report Type: 
  Country: None (occurrence: None)
  Receive Date: 20050202
  Receipt Date: 20050202
  Transmission Date: 20050727
  Serious: No
  Sender: FDA-Public Use
  Company Number: None

PATIENT
  Age: 37 Year
  Sex: Female
  Weight: 53.0709 kg

DRUGS (1)
  1. ORTHO EVRA [Suspect]
     Dosage: 1 PATCH   WEEKLY

REACTIONS (1)
  - THROMBOSIS [None]
